FAERS Safety Report 12213166 (Version 1)
Quarter: 2016Q1

REPORT INFORMATION
  Report Type: Spontaneous
  Country: US (occurrence: None)
  Receive Date: 20160325
  Receipt Date: 20160325
  Transmission Date: 20160526
  Serious: Yes (Disabling)
  Sender: FDA-Public Use
  Company Number: None

PATIENT
  Age: 50 Year
  Sex: Male
  Weight: 158.76 kg

DRUGS (4)
  1. LOSARTAN POT TAB 50MG CADISTA [Suspect]
     Active Substance: LOSARTAN POTASSIUM
     Indication: HYPERTENSION
     Dosage: 180 TABLET(S) TWICE A DAY
     Route: 048
     Dates: start: 20160201, end: 20160321
  2. NOVOLOG 70/30 HUMAN INSULIN [Concomitant]
  3. LOVOSTATIN [Concomitant]
  4. GLIMEPRIDE [Concomitant]
     Active Substance: GLIMEPIRIDE

REACTIONS (3)
  - Dyspnoea [None]
  - Weight increased [None]
  - Wheezing [None]

NARRATIVE: CASE EVENT DATE: 20160201
